FAERS Safety Report 7030062-7 (Version None)
Quarter: 2010Q4

REPORT INFORMATION
  Report Type: 
  Country: None (occurrence: None)
  Receive Date: 20101006
  Receipt Date: 20100927
  Transmission Date: 20110411
  Serious: Yes (Other)
  Sender: FDA-Public Use
  Company Number: US-JNJFOC-20101000360

PATIENT
  Sex: Male
  Weight: 61.24 kg

DRUGS (4)
  1. SANDOZ FENTANYL TRANSDERMAL SYSTEM [Suspect]
     Indication: MYALGIA
     Dosage: NDC# 0781-7114-55
     Route: 062
  2. FENTANYL-100 [Suspect]
     Indication: MYALGIA
     Route: 062
  3. MORPHINE [Concomitant]
     Indication: PAIN
     Route: 048
  4. HEART MEDICATION (NOS) [Concomitant]
     Indication: CARDIAC DISORDER
     Route: 048

REACTIONS (7)
  - ABDOMINAL DISCOMFORT [None]
  - DEPRESSION [None]
  - HYPERSOMNIA [None]
  - INAPPROPRIATE SCHEDULE OF DRUG ADMINISTRATION [None]
  - MULTIPLE MYELOMA [None]
  - PRODUCT QUALITY ISSUE [None]
  - SOMNOLENCE [None]
